FAERS Safety Report 9053444 (Version 1)
Quarter: 2013Q1

REPORT INFORMATION
  Report Type: Spontaneous
  Country: DK (occurrence: DK)
  Receive Date: 20130208
  Receipt Date: 20130208
  Transmission Date: 20140127
  Serious: Yes (Life-Threatening, Hospitalization, Disabling)
  Sender: FDA-Public Use
  Company Number: PHHY2011DK74094

PATIENT
  Age: 16 None
  Sex: Female
  Weight: 55 kg

DRUGS (2)
  1. GESTONETTE [Suspect]
     Indication: ORAL CONTRACEPTION
     Dosage: 1 DF, QD
     Route: 048
     Dates: start: 20100320, end: 20110721
  2. GESTONETTE [Suspect]
     Indication: DYSMENORRHOEA

REACTIONS (9)
  - Cerebral venous thrombosis [Recovering/Resolving]
  - Headache [Recovering/Resolving]
  - Cognitive disorder [Recovering/Resolving]
  - Visual impairment [Recovering/Resolving]
  - Disturbance in attention [Not Recovered/Not Resolved]
  - Memory impairment [Not Recovered/Not Resolved]
  - Learning disorder [Not Recovered/Not Resolved]
  - Migraine [Unknown]
  - Diplopia [Unknown]
